FAERS Safety Report 5331676-2 (Version None)
Quarter: 2007Q2

REPORT INFORMATION
  Report Type: 
  Country: None (occurrence: None)
  Receive Date: 20070516
  Receipt Date: 20070504
  Transmission Date: 20071010
  Serious: Yes (Hospitalization)
  Sender: FDA-Public Use
  Company Number: MC200700349

PATIENT
  Age: 77 Year
  Sex: Female
  Weight: 63 kg

DRUGS (19)
  1. ANGIOMAX [Suspect]
     Dosage: SEE IMAGE
     Route: 042
     Dates: start: 20070423, end: 20070423
  2. HEPARIN [Suspect]
     Dosage: 5100 IU
     Dates: start: 20070423
  3. ASPIRIN [Suspect]
     Dosage: 81 MG, QD, ORAL
     Route: 048
  4. PLAVIX [Suspect]
     Dosage: SEE IMAGE
     Route: 048
     Dates: start: 20070423
  5. PLAVIX [Suspect]
     Dosage: SEE IMAGE
     Route: 048
     Dates: start: 20070424
  6. TEGRETOL [Concomitant]
  7. SYNTHROID [Concomitant]
  8. LAMICTAL [Concomitant]
  9. ADVAIR DISKUS 100/50 [Concomitant]
  10. VERSED [Concomitant]
  11. NITROGLYCERIN [Concomitant]
  12. NALOXONE [Concomitant]
  13. MORPHINE SULFATE [Concomitant]
  14. NITROGLYCERIN (GLYCERYL TRINITRATE) PATCH [Concomitant]
  15. PROTONIX /01263201/ (PANTOPRAZOLE) [Concomitant]
  16. PEPCID /00706001/ (FAMOTIDINE) [Concomitant]
  17. CLINDAMYCIN (CLINDAMYCIN) [Concomitant]
  18. LOVASTATIN [Concomitant]
  19. LASIX [Concomitant]

REACTIONS (4)
  - ANAEMIA [None]
  - CATHETER SITE HAEMATOMA [None]
  - POST PROCEDURAL HAEMATOMA [None]
  - VASCULAR PSEUDOANEURYSM [None]
